FAERS Safety Report 22661916 (Version 1)
Quarter: 2023Q2

REPORT INFORMATION
  Report Type: Report from Study
  Country: ID (occurrence: ID)
  Receive Date: 20230630
  Receipt Date: 20230630
  Transmission Date: 20230721
  Serious: Yes (Hospitalization)
  Sender: FDA-Public Use
  Company Number: ID-BAYER-2023A085801

PATIENT
  Age: 65 Year
  Sex: Male

DRUGS (1)
  1. STIVARGA [Suspect]
     Active Substance: REGORAFENIB
     Indication: Colorectal cancer metastatic
     Dosage: 160

REACTIONS (4)
  - Tumour marker increased [Not Recovered/Not Resolved]
  - Surgery [None]
  - Liver disorder [None]
  - Gastric disorder [None]

NARRATIVE: CASE EVENT DATE: 20230514
